FAERS Safety Report 5024936-6 (Version None)
Quarter: 2006Q2

REPORT INFORMATION
  Report Type: 
  Country: None (occurrence: None)
  Receive Date: 20060607
  Receipt Date: 20060524
  Transmission Date: 20061013
  Serious: Yes (Death, Hospitalization)
  Sender: FDA-Public Use
  Company Number: 225494

PATIENT
  Age: 51 Year
  Sex: Male

DRUGS (12)
  1. METALYSE (TENECTEPLASE) PWDR + SOLVENT, INUECTION SOLN, 50MG [Suspect]
     Indication: MYOCARDIAL INFARCTION
     Dosage: 8000 IU, INTRAVENOUS
     Route: 042
     Dates: start: 20051016, end: 20051016
  2. ASPIRIN [Concomitant]
  3. MORPHINE [Concomitant]
  4. HEPARIN [Concomitant]
  5. CLOPIDOGREL (CLOPIDOGREL BISULFATE) [Concomitant]
  6. IIB/IIIA ANTAGONIST (SIBRAFIBAN) [Concomitant]
  7. NITRATES (VARIOUS) (NITRATES NOS) [Concomitant]
  8. DIURETICS (DIURETICS) [Concomitant]
  9. AMEA/AT-I (INGREDIENTS) (GENERIC COMPONENT (S)) [Concomitant]
  10. STATINS NOS (STATINS NOS) [Concomitant]
  11. INSULIN [Concomitant]
  12. INOTROPIC AGENTS (INOTROPIC AGENTS) [Concomitant]

REACTIONS (5)
  - ATRIAL FIBRILLATION [None]
  - CARDIAC FAILURE [None]
  - CARDIOGENIC SHOCK [None]
  - RESPIRATORY TRACT INFECTION [None]
  - VENTRICULAR FIBRILLATION [None]
